FAERS Safety Report 12421748 (Version 1)
Quarter: 2016Q2

REPORT INFORMATION
  Report Type: Spontaneous
  Country: US (occurrence: US)
  Receive Date: 20160531
  Receipt Date: 20160531
  Transmission Date: 20160815
  Serious: No
  Sender: FDA-Public Use
  Company Number: US-BAYER-2016-101528

PATIENT
  Age: 55 Year
  Sex: Female

DRUGS (4)
  1. CLIMARA [Suspect]
     Active Substance: ESTRADIOL
     Dosage: 1 DF, BIW
     Route: 062
     Dates: start: 201508, end: 2015
  2. CLIMARA PRO [Suspect]
     Active Substance: ESTRADIOL\LEVONORGESTREL
     Indication: HOT FLUSH
     Dosage: 1 DF, BIW
     Route: 062
     Dates: start: 201602
  3. CLIMARA PRO [Suspect]
     Active Substance: ESTRADIOL\LEVONORGESTREL
     Indication: HOT FLUSH
     Dosage: 1 DF, BIW
     Route: 062
     Dates: start: 201508, end: 2015
  4. CLIMARA [Suspect]
     Active Substance: ESTRADIOL
     Dosage: 1 DF, BIW
     Route: 062
     Dates: start: 201602

REACTIONS (3)
  - Metrorrhagia [None]
  - Intentional product misuse [None]
  - Device issue [Not Recovered/Not Resolved]

NARRATIVE: CASE EVENT DATE: 2015
